FAERS Safety Report 12239293 (Version 1)
Quarter: 2016Q2

REPORT INFORMATION
  Report Type: Other
  Country: GB (occurrence: GB)
  Receive Date: 20160405
  Receipt Date: 20160405
  Transmission Date: 20160815
  Serious: Yes (Hospitalization, Other)
  Sender: FDA-Public Use
  Company Number: GB-MYLANLABS-2016M1013686

PATIENT

DRUGS (2)
  1. RAMIPRIL. [Concomitant]
     Active Substance: RAMIPRIL
     Dosage: 5 MG, QD
  2. RABEPRAZOLE [Suspect]
     Active Substance: RABEPRAZOLE
     Indication: DYSPEPSIA
     Dosage: 20 MG, UNK
     Route: 048
     Dates: start: 19991112, end: 20150902

REACTIONS (6)
  - Electrolyte imbalance [Unknown]
  - Blood calcium decreased [Recovered/Resolved]
  - Dizziness [Unknown]
  - Malaise [Unknown]
  - Blood magnesium decreased [Recovered/Resolved]
  - Paraesthesia [Unknown]

NARRATIVE: CASE EVENT DATE: 20150828
